FAERS Safety Report 12195913 (Version 2)
Quarter: 2016Q3

REPORT INFORMATION
  Report Type: Other
  Country: US (occurrence: US)
  Receive Date: 20160321
  Receipt Date: 20160718
  Transmission Date: 20161109
  Serious: Yes (Death, Hospitalization)
  Sender: FDA-Public Use
  Company Number: US-ENDO PHARMACEUTICALS INC-2016-001745

PATIENT
  Age: 56 Year
  Sex: Male

DRUGS (1)
  1. ALLOPURINOL TABLETS [Suspect]
     Active Substance: ALLOPURINOL
     Indication: PROPHYLAXIS
     Route: 065

REACTIONS (2)
  - Cardiac arrest [Fatal]
  - Drug reaction with eosinophilia and systemic symptoms [Fatal]
